FAERS Safety Report 9410070 (Version 1)
Quarter: 2013Q3

REPORT INFORMATION
  Report Type: Spontaneous
  Country: US (occurrence: US)
  Receive Date: 20130719
  Receipt Date: 20130719
  Transmission Date: 20140515
  Serious: Yes (Death)
  Sender: FDA-Public Use
  Company Number: US-JNJFOC-20130708692

PATIENT
  Sex: 0

DRUGS (10)
  1. DOXORUBICIN [Suspect]
     Indication: TRANSITIONAL CELL CARCINOMA
     Dosage: ON DAY 1, 5 CYCLES
     Route: 042
  2. GEMCITABINE [Suspect]
     Indication: TRANSITIONAL CELL CARCINOMA
     Dosage: OVER 2 HOURS, ON DAY 1, 5 CYCLES
     Route: 042
  3. PACLITAXEL [Suspect]
     Indication: TRANSITIONAL CELL CARCINOMA
     Dosage: 3-HOUR INFUSION
     Route: 042
  4. CISPLATIN [Suspect]
     Indication: TRANSITIONAL CELL CARCINOMA
     Route: 042
  5. IFOSFAMIDE [Suspect]
     Indication: TRANSITIONAL CELL CARCINOMA
     Dosage: 2 HOUR INFUSION ON DAY 1, REPEATED ON DAYS 2 AND 3
     Route: 042
  6. MESNA [Concomitant]
     Indication: TRANSITIONAL CELL CARCINOMA
     Dosage: 30 MINUTES BEFORE AND 4 AND 8 HOURS AFTER IFOSFAMIDE
     Route: 042
  7. RECOMBINANT HUMAN GRANULOCYTE COLONY-STIMULATING FACTOR (RHG-CSF) [Concomitant]
     Route: 058
  8. DEXAMETHASONE [Concomitant]
     Indication: PREMEDICATION
     Route: 065
  9. DIPHENHYDRAMINE HYDROCHLORIDE [Concomitant]
     Indication: PREMEDICATION
     Route: 065
  10. CIMETIDINE [Concomitant]
     Indication: PREMEDICATION
     Route: 065

REACTIONS (3)
  - Urosepsis [Fatal]
  - Wrong technique in drug usage process [Unknown]
  - Off label use [Unknown]
